FAERS Safety Report 24808848 (Version 1)
Quarter: 2025Q1

REPORT INFORMATION
  Report Type: Spontaneous
  Country: US (occurrence: US)
  Receive Date: 20250106
  Receipt Date: 20250106
  Transmission Date: 20250409
  Serious: No
  Sender: SUNOVION
  Company Number: US-SUMITOMO PHARMA SWITZERLAND GMBH-2024SPA006231

PATIENT

DRUGS (5)
  1. GEMTESA [Suspect]
     Active Substance: VIBEGRON
     Indication: Stress urinary incontinence
     Dosage: 75 MG, QD IN THE MORNING
     Route: 048
     Dates: start: 20241210
  2. SPIRONOLACTONE [Concomitant]
     Active Substance: SPIRONOLACTONE
     Indication: Hypertension
     Route: 065
  3. B12 [Concomitant]
     Indication: Eye disorder
     Route: 065
  4. VITAMIN D3 [Concomitant]
     Active Substance: CHOLECALCIFEROL
     Route: 065
  5. VITAMINS [Concomitant]
     Active Substance: VITAMINS
     Route: 065

REACTIONS (1)
  - Abdominal distension [Unknown]
